FAERS Safety Report 12400617 (Version 2)
Quarter: 2016Q2

REPORT INFORMATION
  Report Type: Spontaneous
  Country: US (occurrence: US)
  Receive Date: 20160525
  Receipt Date: 20160525
  Transmission Date: 20160815
  Serious: No
  Sender: FDA-Public Use
  Company Number: US-SA-2015SA160901

PATIENT
  Age: 63 Year
  Sex: Female

DRUGS (5)
  1. LANTUS SOLOSTAR [Suspect]
     Active Substance: INSULIN GLARGINE
     Indication: TYPE 2 DIABETES MELLITUS
     Dosage: 60U IN AM/ 20 U PM
     Route: 065
     Dates: start: 2007
  2. SOLOSTAR [Concomitant]
     Active Substance: DEVICE
  3. LANTUS SOLOSTAR [Suspect]
     Active Substance: INSULIN GLARGINE
     Indication: TYPE 2 DIABETES MELLITUS
     Dosage: 60U IN AM/ 20 U PM
     Route: 065
     Dates: start: 2007
  4. LANTUS SOLOSTAR [Suspect]
     Active Substance: INSULIN GLARGINE
     Indication: TYPE 2 DIABETES MELLITUS
     Dosage: 60U IN AM/ 20 U PM
     Route: 065
     Dates: start: 2007
  5. LANTUS SOLOSTAR [Suspect]
     Active Substance: INSULIN GLARGINE
     Indication: TYPE 2 DIABETES MELLITUS
     Dosage: 60U IN AM/ 20 U PM
     Route: 065
     Dates: start: 2007

REACTIONS (5)
  - Drug administration error [Unknown]
  - Visual impairment [Unknown]
  - Wrong technique in product usage process [Unknown]
  - Condition aggravated [Unknown]
  - Mental impairment [Unknown]

NARRATIVE: CASE EVENT DATE: 2007
